FAERS Safety Report 5958369-2 (Version None)
Quarter: 2008Q4

REPORT INFORMATION
  Report Type: 
  Country: None (occurrence: None)
  Receive Date: 20081119
  Receipt Date: 20081111
  Transmission Date: 20090506
  Serious: Yes (Other)
  Sender: FDA-Public Use
  Company Number: ES-ASTRAZENECA-2008AC02883

PATIENT
  Age: 61 Year
  Sex: Female
  Weight: 70.8 kg

DRUGS (3)
  1. SEROQUEL [Suspect]
     Indication: SCHIZOPHRENIA
     Route: 048
     Dates: start: 20081020, end: 20081020
  2. HALOPERIDOL [Concomitant]
     Indication: SCHIZOPHRENIA
     Route: 048
     Dates: start: 20060101
  3. LORAZEPAM [Concomitant]
     Route: 048

REACTIONS (2)
  - ANGIOEDEMA [None]
  - PRURITUS GENERALISED [None]
